FAERS Safety Report 10419854 (Version 1)
Quarter: 2014Q2

REPORT INFORMATION
  Report Type: Spontaneous
  Country: US (occurrence: None)
  Receive Date: 20140627
  Receipt Date: 20140627
  Transmission Date: 20141212
  Serious: Yes (Other)
  Sender: FDA-Public Use
  Company Number: PHEH2014US002556

PATIENT
  Age: 62 Year
  Sex: Female

DRUGS (13)
  1. DIOVAN HCT (VALSARTAN, HYDROCHLOROTHIAZIDE) UNKNOWN [Suspect]
     Dosage: UNK DF (160/12.5 MG), UNK
  2. EFFEXOR (VENLAFAXINE HYDROCHLORIDE) [Concomitant]
  3. VICTOZA (LIRAGLUTIDE) [Concomitant]
  4. OMEPRAZOLE [Concomitant]
  5. LEVEMIR (INSULIN DETEMIR) [Concomitant]
  6. GLIPIZIDE [Concomitant]
  7. METFORMIN [Concomitant]
  8. TENORMIN (ATENOLOL) [Concomitant]
  9. WELCHOL (COLESEVELAM HYDROCHLORIDE) [Concomitant]
  10. SYNTHROID (LEVOTHYROXINE SODIUM) [Concomitant]
  11. VITAMIN C (ASCORBIC ACID) [Concomitant]
  12. XALATAN ( LATANOPROST) [Concomitant]
  13. ISADOL (ZIDOVUDINE) [Concomitant]

REACTIONS (5)
  - Dizziness [None]
  - Blood pressure increased [None]
  - Feeling abnormal [None]
  - Balance disorder [None]
  - Disorientation [None]
